FAERS Safety Report 24443320 (Version 2)
Quarter: 2024Q4

REPORT INFORMATION
  Report Type: Spontaneous
  Country: US (occurrence: US)
  Receive Date: 20241016
  Receipt Date: 20241104
  Transmission Date: 20250114
  Serious: Yes (Life-Threatening, Hospitalization)
  Sender: TEVA
  Company Number: US-TEVA-VS-3254211

PATIENT
  Age: 70 Year
  Sex: Male

DRUGS (2)
  1. DAPTOMYCIN [Suspect]
     Active Substance: DAPTOMYCIN
     Indication: Staphylococcal infection
     Route: 065
  2. VANCOMYCIN [Concomitant]
     Active Substance: VANCOMYCIN
     Indication: Staphylococcal infection
     Route: 065

REACTIONS (4)
  - Eosinophilic pneumonia acute [Recovering/Resolving]
  - Haemodynamic instability [Unknown]
  - Pleural effusion [Unknown]
  - Respiratory failure [Unknown]
